FAERS Safety Report 5020670-7 (Version None)
Quarter: 2006Q2

REPORT INFORMATION
  Report Type: 
  Country: None (occurrence: None)
  Receive Date: 20060602
  Receipt Date: 20060515
  Transmission Date: 20061013
  Serious: Yes (Disabling)
  Sender: FDA-Public Use
  Company Number: US200605003843

PATIENT
  Age: 61 Year
  Sex: Female

DRUGS (5)
  1. HUMULIN N [Suspect]
     Indication: DIABETES MELLITUS INSULIN-DEPENDENT
  2. HUMULIN L [Suspect]
     Indication: DIABETES MELLITUS INSULIN-DEPENDENT
  3. HUMULIN U [Suspect]
     Indication: DIABETES MELLITUS INSULIN-DEPENDENT
  4. ILETIN [Suspect]
     Indication: DIABETES MELLITUS INSULIN-DEPENDENT
  5. ILETIN [Suspect]
     Indication: DIABETES MELLITUS INSULIN-DEPENDENT

REACTIONS (6)
  - BLOOD GLUCOSE INCREASED [None]
  - DRUG INEFFECTIVE [None]
  - JOINT DISLOCATION [None]
  - MALAISE [None]
  - OSTEOARTHRITIS [None]
  - THERAPEUTIC RESPONSE DECREASED [None]
